FAERS Safety Report 12266795 (Version 1)
Quarter: 2016Q2

REPORT INFORMATION
  Report Type: Spontaneous
  Country: US (occurrence: US)
  Receive Date: 20160414
  Receipt Date: 20160414
  Transmission Date: 20160815
  Serious: Yes (Hospitalization, Other)
  Sender: FDA-Public Use
  Company Number: US-HOSPIRA-3237930

PATIENT
  Age: 9 Year
  Sex: Male

DRUGS (2)
  1. VINCRISTINE SULFATE. [Suspect]
     Active Substance: VINCRISTINE SULFATE
     Indication: ACUTE LYMPHOCYTIC LEUKAEMIA
  2. BLINATUMOMAB [Suspect]
     Active Substance: BLINATUMOMAB
     Indication: ACUTE LYMPHOCYTIC LEUKAEMIA
     Route: 041
     Dates: start: 20151225

REACTIONS (10)
  - Drug ineffective [Not Recovered/Not Resolved]
  - Bronchiectasis [Unknown]
  - Pneumonia viral [Recovered/Resolved]
  - Neurotoxicity [Unknown]
  - Kidney enlargement [Unknown]
  - Renal ischaemia [Unknown]
  - Pancytopenia [Unknown]
  - Fungal infection [Recovering/Resolving]
  - Atelectasis [Unknown]
  - Hypotension [Unknown]

NARRATIVE: CASE EVENT DATE: 2015
